FAERS Safety Report 10590422 (Version 1)
Quarter: 2014Q4

REPORT INFORMATION
  Report Type: Spontaneous
  Country: FR (occurrence: FR)
  Receive Date: 20141118
  Receipt Date: 20141118
  Transmission Date: 20150529
  Serious: Yes (Other)
  Sender: FDA-Public Use
  Company Number: FR-009507513-1411FRA007437

PATIENT
  Age: 80 Year
  Sex: Female

DRUGS (13)
  1. ZYVOXID [Concomitant]
     Active Substance: LINEZOLID
  2. DEPAMIDE [Concomitant]
     Active Substance: VALPROMIDE
     Dosage: 300 MG, QD, 1 TABLET, DAILY
     Route: 048
     Dates: start: 201310, end: 20140906
  3. INVANZ [Suspect]
     Active Substance: ERTAPENEM SODIUM
     Indication: LUNG ABSCESS
     Dosage: TOTAL DAILY DOSE: 1G, QD
     Route: 058
     Dates: start: 20141006
  4. VALPROATE SODIUM. [Suspect]
     Active Substance: VALPROATE SODIUM
     Indication: BIPOLAR DISORDER
     Dosage: 600 MG, FREQUENCY WAS NOT REPORTED
     Route: 048
     Dates: start: 20140916, end: 20140921
  5. LOVENOX [Concomitant]
     Active Substance: ENOXAPARIN SODIUM
     Dosage: STRENGTH: 4000 IU ANTI XA/0.4 ML
  6. DOLIPRANE [Concomitant]
     Active Substance: ACETAMINOPHEN
  7. DEPAMIDE [Concomitant]
     Active Substance: VALPROMIDE
     Dosage: 300 MG, QD
     Route: 048
     Dates: start: 20140907, end: 20140916
  8. VALPROATE SODIUM. [Suspect]
     Active Substance: VALPROATE SODIUM
     Dosage: 800 MG, FREQUENCY WAS NOT REPORTED
     Route: 048
     Dates: start: 20140921, end: 20140926
  9. CORDARONE [Concomitant]
     Active Substance: AMIODARONE HYDROCHLORIDE
  10. OXYNORM [Concomitant]
     Active Substance: OXYCODONE HYDROCHLORIDE
  11. TEMESTA [Concomitant]
     Active Substance: LORAZEPAM
  12. VALPROATE SODIUM. [Suspect]
     Active Substance: VALPROATE SODIUM
     Dosage: 1100 MG, FREQUENCY WAS NOT REPORTED
     Route: 048
     Dates: start: 20140927
  13. FUNGIZONE [Concomitant]
     Active Substance: AMPHOTERICIN B

REACTIONS (1)
  - Drug level changed [Not Recovered/Not Resolved]

NARRATIVE: CASE EVENT DATE: 20141017
